FAERS Safety Report 7132184-9 (Version None)
Quarter: 2010Q4

REPORT INFORMATION
  Report Type: 
  Country: None (occurrence: None)
  Receive Date: 20101202
  Receipt Date: 20101124
  Transmission Date: 20110411
  Serious: Yes (Hospitalization, Other)
  Sender: FDA-Public Use
  Company Number: FR-NOVOPROD-319110

PATIENT
  Age: 79 Year
  Sex: Male

DRUGS (7)
  1. INSULATARD [Suspect]
     Indication: TYPE 2 DIABETES MELLITUS
     Dosage: 50 IU, QD ( 30 IU MORNING AND 20 IU EVENING)
     Route: 058
     Dates: end: 20101013
  2. CERIS [Suspect]
     Indication: PRODUCT USED FOR UNKNOWN INDICATION
     Dosage: 2 TAB, QD ( 2 TABS IN MORNING)
     Route: 048
     Dates: end: 20101012
  3. METFORMIN [Concomitant]
     Indication: TYPE 2 DIABETES MELLITUS
     Dosage: 1000 MG, QD
     Route: 065
  4. METFORMIN [Concomitant]
     Dosage: 500 MG, QD  (1 TABLET MORNING AND EVENING)
     Route: 065
  5. RAMIPRIL [Concomitant]
  6. CARDENSIEL [Concomitant]
  7. PREVISCAN                          /00261401/ [Concomitant]

REACTIONS (3)
  - FALL [None]
  - HYPOGLYCAEMIA [None]
  - RHABDOMYOLYSIS [None]
